FAERS Safety Report 11463893 (Version 1)
Quarter: 2015Q3

REPORT INFORMATION
  Report Type: Spontaneous
  Country: US (occurrence: US)
  Receive Date: 20150831
  Receipt Date: 20150831
  Transmission Date: 20151125
  Serious: No
  Sender: FDA-Public Use
  Company Number: US-ELI_LILLY_AND_COMPANY-US201105004179

PATIENT
  Sex: Female

DRUGS (1)
  1. CYMBALTA [Suspect]
     Active Substance: DULOXETINE HYDROCHLORIDE

REACTIONS (5)
  - Restlessness [Unknown]
  - Decreased appetite [Unknown]
  - Amnesia [Not Recovered/Not Resolved]
  - Drug withdrawal syndrome [Unknown]
  - Cognitive disorder [Unknown]
